FAERS Safety Report 4597646-7 (Version None)
Quarter: 2005Q1

REPORT INFORMATION
  Report Type: 
  Country: None (occurrence: None)
  Receive Date: 20050303
  Receipt Date: 20041203
  Transmission Date: 20050727
  Serious: Yes (Hospitalization)
  Sender: FDA-Public Use
  Company Number: GB-GLAXOSMITHKLINE-B0359019A

PATIENT
  Age: 33 Year
  Sex: Female
  Weight: 65 kg

DRUGS (2)
  1. IMIGRAN [Suspect]
     Indication: MIGRAINE
     Dosage: .5ML AS REQUIRED
     Route: 058
  2. SANOMIGRAN [Concomitant]
     Indication: MIGRAINE
     Dosage: 500MCG AT NIGHT
     Route: 048
     Dates: start: 20041209

REACTIONS (4)
  - INJECTION SITE REACTION [None]
  - MEDICATION ERROR [None]
  - MUSCLE SPASMS [None]
  - PALPITATIONS [None]
